FAERS Safety Report 17213957 (Version 8)
Quarter: 2020Q3

REPORT INFORMATION
  Report Type: Spontaneous
  Country: US (occurrence: US)
  Receive Date: 20191230
  Receipt Date: 20200903
  Transmission Date: 20201102
  Serious: Yes (Hospitalization)
  Sender: FDA-Public Use
  Company Number: US-PFIZER INC-2019555365

PATIENT
  Age: 77 Year
  Sex: Female

DRUGS (2)
  1. ADVIL [IBUPROFEN] [Concomitant]
     Active Substance: IBUPROFEN
     Indication: RHEUMATOID ARTHRITIS
     Dosage: UNK, SOMETIMES AROUND MIDNIGHT OR 1AM
  2. XELJANZ XR [Suspect]
     Active Substance: TOFACITINIB CITRATE
     Dosage: 11 MG
     Dates: start: 201911

REACTIONS (9)
  - COVID-19 [Unknown]
  - Influenza [Recovering/Resolving]
  - Hepatic enzyme increased [Unknown]
  - Product dose omission issue [Unknown]
  - Illness [Unknown]
  - Peripheral swelling [Unknown]
  - Joint effusion [Recovering/Resolving]
  - Oral herpes [Unknown]
  - Nasopharyngitis [Recovering/Resolving]
